FAERS Safety Report 15300940 (Version 1)
Quarter: 2018Q3

REPORT INFORMATION
  Report Type: Spontaneous
  Country: US (occurrence: US)
  Receive Date: 20180809
  Receipt Date: 20180809
  Transmission Date: 20181010
  Serious: No
  Sender: FDA-Public Use
  Company Number: None

PATIENT
  Age: 5 Year
  Sex: Male

DRUGS (2)
  1. MIRALAX [Suspect]
     Active Substance: POLYETHYLENE GLYCOL 3350
     Indication: CONSTIPATION
     Dosage: ?          QUANTITY:1 CAPFULL;?
     Route: 048
     Dates: start: 20130810, end: 20141018
  2. OLLY^S CHILDREN^S VITAMIN [Concomitant]

REACTIONS (7)
  - Anxiety [None]
  - Attention deficit/hyperactivity disorder [None]
  - Self esteem decreased [None]
  - Hallucination [None]
  - Reaction to food additive [None]
  - Nightmare [None]
  - Abnormal behaviour [None]

NARRATIVE: CASE EVENT DATE: 20141018
